FAERS Safety Report 7479240-3 (Version None)
Quarter: 2011Q2

REPORT INFORMATION
  Report Type: 
  Country: None (occurrence: None)
  Receive Date: 20110513
  Receipt Date: 20110505
  Transmission Date: 20111010
  Serious: Yes (Hospitalization)
  Sender: FDA-Public Use
  Company Number: B0717575A

PATIENT
  Sex: Female

DRUGS (22)
  1. EFFEXOR [Concomitant]
     Dosage: 75MG PER DAY
  2. PANADOL OSTEO [Concomitant]
     Indication: PAIN
     Dosage: 665MG TWICE PER DAY
     Dates: start: 20110202
  3. MAXOLON [Concomitant]
     Indication: NAUSEA
     Dosage: 10MG PER DAY
     Dates: start: 20110209
  4. HALOPERIDOL [Concomitant]
     Indication: NAUSEA
     Dates: start: 20110126
  5. NEXIUM [Concomitant]
     Indication: NAUSEA
     Dates: start: 20110420
  6. PHENERGAN HCL [Concomitant]
     Indication: NAUSEA
     Dosage: 20ML PER DAY
     Dates: start: 20110419
  7. PACLITAXEL [Suspect]
     Dosage: 135MG WEEKLY
     Route: 042
     Dates: start: 20110216
  8. IRBESARTAN + HYDROCHLOROTHIAZIDE [Concomitant]
     Indication: HYPERTENSION
     Dates: start: 20010101
  9. VENTOLIN [Concomitant]
     Indication: ASTHMA
     Dates: start: 19760101
  10. LAPATINIB [Suspect]
     Dosage: 1250MG PER DAY
     Route: 048
     Dates: start: 20110216
  11. VITAMIN B [Concomitant]
     Dates: start: 20080101
  12. DEXAMETHASONE [Concomitant]
     Indication: NAUSEA
     Dosage: 8MG PER DAY
     Dates: start: 20110209
  13. COLOXYL + SENNA [Concomitant]
     Indication: CONSTIPATION
     Dosage: 50MG AS REQUIRED
     Dates: start: 20110202
  14. GABAPENTIN [Concomitant]
     Indication: HOT FLUSH
     Dosage: 300MG FIVE TIMES PER DAY
     Dates: start: 20110322
  15. OMEPRAZOLE [Concomitant]
     Indication: ILL-DEFINED DISORDER
     Dates: start: 20110216
  16. PRAMIN [Concomitant]
     Indication: NAUSEA
     Dosage: 10MG FOUR TIMES PER DAY
     Dates: start: 20110202
  17. LORAZEPAM [Concomitant]
     Indication: NAUSEA
     Dosage: .5MG PER DAY
     Dates: start: 20110318
  18. CALCIUM CARBONATE [Concomitant]
     Dates: start: 20080101
  19. METHADONE HCL [Concomitant]
     Indication: PAIN
     Dosage: 10MG NINE TIMES PER DAY
     Dates: start: 20110315
  20. KYTRIL [Concomitant]
     Indication: NAUSEA
     Dosage: 2MG PER DAY
     Dates: start: 20110216
  21. MOVIPREP [Concomitant]
     Indication: CONSTIPATION
     Dosage: 3SAC PER DAY
     Dates: start: 20110212
  22. STEMETIL [Concomitant]
     Indication: NAUSEA
     Dosage: 5MG PER DAY
     Dates: start: 20110216

REACTIONS (4)
  - GASTROINTESTINAL OBSTRUCTION [None]
  - DYSPNOEA [None]
  - ANAEMIA [None]
  - DEEP VEIN THROMBOSIS [None]
